FAERS Safety Report 20721160 (Version 1)
Quarter: 2022Q2

REPORT INFORMATION
  Report Type: Spontaneous
  Country: US (occurrence: None)
  Receive Date: 20220418
  Receipt Date: 20220418
  Transmission Date: 20220720
  Serious: No
  Sender: FDA-Public Use
  Company Number: None

PATIENT
  Sex: Male

DRUGS (1)
  1. XELJANZ XR [Suspect]
     Active Substance: TOFACITINIB CITRATE
     Indication: Rheumatoid nodule
     Dosage: FREQUENCY : DAILY;?
     Route: 048
     Dates: start: 20191121

REACTIONS (5)
  - Pain [None]
  - Infection [None]
  - Arthralgia [None]
  - Arthralgia [None]
  - Condition aggravated [None]
